FAERS Safety Report 17414439 (Version 1)
Quarter: 2020Q1

REPORT INFORMATION
  Report Type: Spontaneous
  Country: ES (occurrence: ES)
  Receive Date: 20200213
  Receipt Date: 20200213
  Transmission Date: 20200409
  Serious: Yes (Hospitalization, Other)
  Sender: FDA-Public Use
  Company Number: ES-MYLANLABS-2020M1015476

PATIENT
  Age: 29 Year
  Sex: Female
  Weight: 69 kg

DRUGS (2)
  1. OLANZAPINE. [Suspect]
     Active Substance: OLANZAPINE
     Indication: SCHIZOTYPAL PERSONALITY DISORDER
     Dosage: MORE THAN 15 TABLETS OF OLANZAPINE
     Route: 048
  2. COCAINE [Interacting]
     Active Substance: COCAINE
     Indication: PRODUCT USED FOR UNKNOWN INDICATION
     Dosage: UNK

REACTIONS (8)
  - Hyperglycaemia [Recovered/Resolved]
  - Intentional overdose [Recovered/Resolved]
  - Drug interaction [Recovered/Resolved]
  - Pupillary reflex impaired [Recovered/Resolved]
  - Suicide attempt [Recovered/Resolved]
  - Respiratory arrest [Recovered/Resolved]
  - Cyanosis central [Recovered/Resolved]
  - Loss of consciousness [Recovered/Resolved]
